FAERS Safety Report 8058108 (Version 2)
Quarter: 2013Q1

REPORT INFORMATION
  Report Type: Spontaneous
  Country: US (occurrence: None)
  Receive Date: 20110715
  Receipt Date: 20130222
  Transmission Date: 20140127
  Serious: Yes (Other)
  Sender: FDA-Public Use
  Company Number: ACO_25596_2011

PATIENT
  Age: 59 Year
  Sex: Female

DRUGS (1)
  1. AMPYRA [Suspect]
     Dosage: 10 MG, Q 12 HRS, ORAL
     Route: 048
     Dates: start: 20110325

REACTIONS (2)
  - SYNCOPE [None]
  - CONVULSION [None]
